FAERS Safety Report 6136861-8 (Version None)
Quarter: 2009Q1

REPORT INFORMATION
  Report Type: 
  Country: None (occurrence: None)
  Receive Date: 20090330
  Receipt Date: 20090318
  Transmission Date: 20090719
  Serious: Yes (Hospitalization, Other)
  Sender: FDA-Public Use
  Company Number: CA-ELI_LILLY_AND_COMPANY-CA200706005985

PATIENT
  Age: 76 Year
  Sex: Female

DRUGS (14)
  1. FORTEO [Suspect]
     Indication: OSTEOPOROSIS
     Dosage: 20 UG, DAILY (1/D)
     Route: 058
     Dates: start: 20070519, end: 20071112
  2. FORTEO [Suspect]
     Dosage: 20 UG, DAILY (1/D)
     Route: 058
     Dates: start: 20080108, end: 20081119
  3. AVAPRO [Concomitant]
  4. WELLBUTRIN [Concomitant]
  5. ASPIRIN [Concomitant]
  6. SYNTHROID [Concomitant]
  7. CENTRUM [Concomitant]
  8. COMBIVENT [Concomitant]
  9. PULMICORT-100 [Concomitant]
  10. CALCIUM [Concomitant]
  11. VITAMIN D [Concomitant]
  12. CRESTOR [Concomitant]
  13. ALLOPURINOL [Concomitant]
  14. LASIX [Concomitant]

REACTIONS (6)
  - BREAST CANCER [None]
  - MUSCLE SPASMS [None]
  - NECK PAIN [None]
  - NON-CARDIAC CHEST PAIN [None]
  - PAIN [None]
  - PARAESTHESIA [None]
